FAERS Safety Report 4637116-0 (Version None)
Quarter: 2005Q2

REPORT INFORMATION
  Report Type: 
  Country: None (occurrence: None)
  Receive Date: 20050325
  Receipt Date: 20050110
  Transmission Date: 20051028
  Serious: No
  Sender: FDA-Public Use
  Company Number: USA040773586

PATIENT
  Age: 75 Year
  Sex: Female
  Weight: 40 kg

DRUGS (7)
  1. FORTEO [Suspect]
     Indication: OSTEOPOROSIS
     Dosage: 20 UG DAY
     Dates: start: 20040803
  2. CORAL  CALCIUM [Concomitant]
  3. ACTONEL [Concomitant]
  4. PRAVACHOL (PRAVASTATOM SODIUM) [Concomitant]
  5. MULTI-VITAMIN [Concomitant]
  6. PREMARIN [Concomitant]
  7. VALIUM [Concomitant]

REACTIONS (14)
  - ABDOMINAL PAIN UPPER [None]
  - ANAEMIA [None]
  - ARTHRALGIA [None]
  - ARTHRITIS [None]
  - ARTHROPATHY [None]
  - BLOOD CALCIUM INCREASED [None]
  - BONE PAIN [None]
  - CONSTIPATION [None]
  - FATIGUE [None]
  - INJECTION SITE ERYTHEMA [None]
  - INSOMNIA [None]
  - MALAISE [None]
  - RESTLESS LEGS SYNDROME [None]
  - SKIN ODOUR ABNORMAL [None]
